FAERS Safety Report 5132972-4 (Version None)
Quarter: 2006Q4

REPORT INFORMATION
  Report Type: 
  Country: None (occurrence: None)
  Receive Date: 20061023
  Receipt Date: 20060925
  Transmission Date: 20070319
  Serious: Yes (Hospitalization)
  Sender: FDA-Public Use
  Company Number: 2006UW18722

PATIENT
  Age: 20 Year
  Sex: Female

DRUGS (3)
  1. IRESSA [Suspect]
     Indication: NEOPLASM
     Route: 048
     Dates: start: 20060907, end: 20060920
  2. IRINOTECAN HCL [Suspect]
     Dates: start: 20060909, end: 20060920
  3. VINCRISTINE [Suspect]
     Dates: start: 20060909, end: 20060920

REACTIONS (36)
  - ABDOMINAL PAIN [None]
  - ASTIGMATISM [None]
  - BACTERIAL INFECTION [None]
  - BLOOD AMYLASE INCREASED [None]
  - CHEST PAIN [None]
  - CHOLELITHIASIS [None]
  - COLITIS [None]
  - DIARRHOEA [None]
  - DIPLOPIA [None]
  - ENTEROCOLITIS [None]
  - FEBRILE NEUTROPENIA [None]
  - HAEMOGLOBIN DECREASED [None]
  - HETEROPHORIA [None]
  - HYPOKALAEMIA [None]
  - HYPONATRAEMIA [None]
  - HYPOPHOSPHATAEMIA [None]
  - HYPOTENSION [None]
  - INAPPROPRIATE ANTIDIURETIC HORMONE SECRETION [None]
  - INFECTION [None]
  - INJURY [None]
  - LIPASE INCREASED [None]
  - MUCOSAL INFLAMMATION [None]
  - NAUSEA [None]
  - NECK PAIN [None]
  - NEUTROPHIL COUNT [None]
  - OEDEMA PERIPHERAL [None]
  - OESOPHAGITIS [None]
  - PACKED RED BLOOD CELL TRANSFUSION [None]
  - PAIN [None]
  - PAIN IN EXTREMITY [None]
  - PANCREATITIS [None]
  - SEPTIC SHOCK [None]
  - TUMOUR ASSOCIATED FEVER [None]
  - VISION BLURRED [None]
  - VOMITING [None]
  - WHITE BLOOD CELL COUNT [None]
